FAERS Safety Report 14300944 (Version 13)
Quarter: 2021Q4

REPORT INFORMATION
  Report Type: Spontaneous
  Country: GB (occurrence: GB)
  Receive Date: 20171219
  Receipt Date: 20211013
  Transmission Date: 20220303
  Serious: Yes (Other)
  Sender: FDA-Public Use
  Company Number: GB-BAXTER-2017BAX039111

PATIENT
  Age: 73 Year
  Sex: Female
  Weight: 50.2 kg

DRUGS (68)
  1. SODIUM CHLORIDE [Suspect]
     Active Substance: SODIUM CHLORIDE
     Indication: Medication dilution
     Dosage: DAY 1 OF CYCLE 2, VMP REGIMEN, COMPOUNDED WITH BORTEZOMIB
     Route: 041
     Dates: start: 20171103, end: 20171106
  2. SODIUM CHLORIDE [Suspect]
     Active Substance: SODIUM CHLORIDE
     Dosage: DAY 4 OF CYCLE 2, VMP REGIMEN, COMPOUNDED WITH BORTEZOMIB
     Route: 058
     Dates: start: 20171106, end: 20171106
  3. SODIUM CHLORIDE [Suspect]
     Active Substance: SODIUM CHLORIDE
     Dosage: DAY 8 OF CYCLE 2, VMP REGIMEN, COMPOUNDED WITH BORTEZOMIB
     Route: 041
     Dates: start: 20171110, end: 20171114
  4. SODIUM CHLORIDE [Suspect]
     Active Substance: SODIUM CHLORIDE
     Route: 041
     Dates: start: 20171107, end: 201711
  5. SODIUM CHLORIDE [Suspect]
     Active Substance: SODIUM CHLORIDE
     Dosage: 1 CYCLE
     Route: 065
     Dates: start: 20171110, end: 20171110
  6. SODIUM CHLORIDE [Suspect]
     Active Substance: SODIUM CHLORIDE
     Dosage: 1 CYCLE
     Route: 065
     Dates: start: 20171103, end: 20171106
  7. SODIUM CHLORIDE [Suspect]
     Active Substance: SODIUM CHLORIDE
     Dosage: 17-NOV-2017 TO -NOV-2017
     Route: 065
     Dates: start: 20171117, end: 201711
  8. SODIUM CHLORIDE [Suspect]
     Active Substance: SODIUM CHLORIDE
     Route: 041
     Dates: start: 20171110, end: 20171110
  9. METOCLOPRAMIDE [Suspect]
     Active Substance: METOCLOPRAMIDE
     Indication: Product used for unknown indication
     Dosage: QDS PRN?10 MILLIGRAM, AS NECESSARY
     Route: 065
  10. METOCLOPRAMIDE [Suspect]
     Active Substance: METOCLOPRAMIDE
     Route: 065
  11. MELPHALAN [Suspect]
     Active Substance: MELPHALAN
     Indication: Plasma cell leukaemia
     Dosage: CYCLE 1, VMP REGIMEN
     Route: 065
  12. MELPHALAN [Suspect]
     Active Substance: MELPHALAN
     Dosage: VMP REGIMEN, DAY 1 TO 4, CYCLE 2
     Route: 065
     Dates: start: 20171103, end: 20171106
  13. MELPHALAN [Suspect]
     Active Substance: MELPHALAN
     Dosage: 1 CYCLE
     Route: 065
  14. MELPHALAN [Suspect]
     Active Substance: MELPHALAN
     Dosage: 14 MILLIGRAM, ONCE A DAY
     Route: 065
     Dates: start: 20171103, end: 20171103
  15. MELPHALAN [Suspect]
     Active Substance: MELPHALAN
     Dosage: 14 MILLIGRAM, DAILY
     Route: 065
     Dates: start: 20171107, end: 20171110
  16. MELPHALAN [Suspect]
     Active Substance: MELPHALAN
     Route: 065
     Dates: start: 20171103
  17. MELPHALAN [Suspect]
     Active Substance: MELPHALAN
     Route: 065
  18. RAMIPRIL [Suspect]
     Active Substance: RAMIPRIL
     Indication: Product used for unknown indication
     Dosage: OM (EVERY MORNING)?10 MILLIGRAM, ONCE A DAY, DOSAGE FORM: UNSPECIFIED, EVERY MORNING
     Route: 065
  19. RAMIPRIL [Suspect]
     Active Substance: RAMIPRIL
     Route: 048
  20. RAMIPRIL [Suspect]
     Active Substance: RAMIPRIL
     Dosage: 10 MILLIGRAM, ONCE A DAY (EVERY MORNING)
     Route: 048
  21. BENDROFLUMETHIAZIDE [Suspect]
     Active Substance: BENDROFLUMETHIAZIDE
     Indication: Product used for unknown indication
     Dosage: OM (EVERY MORNING)?2.5 MILLIGRAM, ONCE A DAY,
     Route: 065
  22. BENDROFLUMETHIAZIDE [Suspect]
     Active Substance: BENDROFLUMETHIAZIDE
     Dosage: 3 MG
     Route: 065
  23. OMEPRAZOLE [Suspect]
     Active Substance: OMEPRAZOLE
     Indication: Product used for unknown indication
     Dosage: OM (EVERY MORNING)?20 MILLIGRAM, ONCE A DAY, UNSPECIFIED, EVERY MORNING, TABLET
     Route: 048
  24. OMEPRAZOLE [Suspect]
     Active Substance: OMEPRAZOLE
     Dosage: 20 MILLIGRAM, ONCE A DAY
     Route: 048
  25. PREDNISONE [Suspect]
     Active Substance: PREDNISONE
     Indication: Plasma cell leukaemia
     Dosage: DOSAGE FORM: UNSPECIFIED.
     Route: 065
  26. PREDNISONE [Suspect]
     Active Substance: PREDNISONE
     Dosage: DOSAGE FORM: UNSPECIFIED.
     Route: 065
     Dates: start: 20171103, end: 20171106
  27. PREDNISONE [Suspect]
     Active Substance: PREDNISONE
     Dosage: 70 MILLIGRAM, ONCE A DAY
     Route: 065
     Dates: start: 20171103, end: 20171103
  28. PREDNISONE [Suspect]
     Active Substance: PREDNISONE
     Dosage: 70 MILLIGRAM, QD, 1 CYCLE
     Route: 065
     Dates: start: 20171106, end: 20171106
  29. PREDNISONE [Suspect]
     Active Substance: PREDNISONE
     Dosage: 70 MILLIGRAM, 1 CYCLE
     Route: 065
  30. PREDNISONE [Suspect]
     Active Substance: PREDNISONE
     Route: 065
  31. DEXAMETHASONE [Suspect]
     Active Substance: DEXAMETHASONE
     Indication: Plasma cell leukaemia
     Dosage: 20MG, DAILY
     Route: 065
     Dates: start: 20171102, end: 20171106
  32. DEXAMETHASONE [Suspect]
     Active Substance: DEXAMETHASONE
     Dosage: 20 UNK
     Route: 065
  33. DEXAMETHASONE [Suspect]
     Active Substance: DEXAMETHASONE
     Route: 065
  34. SERTRALINE [Suspect]
     Active Substance: SERTRALINE HYDROCHLORIDE
     Indication: Product used for unknown indication
     Dosage: 50 MG, ONCE A DAY, OM (EVERY MORNING)
     Route: 065
  35. SERTRALINE [Suspect]
     Active Substance: SERTRALINE HYDROCHLORIDE
     Route: 065
  36. FENTANYL [Suspect]
     Active Substance: FENTANYL
     Indication: Product used for unknown indication
     Dosage: 12 MICROGRAM
     Route: 062
     Dates: start: 20171108
  37. FENTANYL [Suspect]
     Active Substance: FENTANYL
     Route: 065
     Dates: start: 20171108
  38. FENTANYL [Suspect]
     Active Substance: FENTANYL
     Dosage: 12 MG, EVERY 1 HOUR
     Route: 062
     Dates: start: 20171108
  39. ALLOPURINOL [Suspect]
     Active Substance: ALLOPURINOL
     Indication: Product used for unknown indication
     Dosage: 30 MG, DAILY
     Route: 065
     Dates: start: 20171104, end: 20171120
  40. ALLOPURINOL [Suspect]
     Active Substance: ALLOPURINOL
     Dosage: 300 MILLIGRAM, DAILY?PHARMACEUTICAL FORM: TABLET
     Route: 065
     Dates: start: 20171104, end: 20171120
  41. ALLOPURINOL [Suspect]
     Active Substance: ALLOPURINOL
     Dosage: 300 MILLIGRAM, QD?PHARMACEUTICAL FORM:TABLET
     Route: 065
     Dates: start: 20171120
  42. ALLOPURINOL [Suspect]
     Active Substance: ALLOPURINOL
     Dosage: 30 MG, QD
     Route: 065
  43. ALLOPURINOL [Suspect]
     Active Substance: ALLOPURINOL
     Dosage: 30 MG, QD
     Route: 065
  44. ALLOPURINOL [Suspect]
     Active Substance: ALLOPURINOL
     Route: 065
  45. BORTEZOMIB [Suspect]
     Active Substance: BORTEZOMIB
     Indication: Plasma cell leukaemia
     Dosage: 2 MG/M2
     Route: 058
     Dates: start: 20171110, end: 20171114
  46. BORTEZOMIB [Suspect]
     Active Substance: BORTEZOMIB
     Dosage: 2 MG/M2, QCY
     Route: 058
     Dates: start: 20171103, end: 20171103
  47. BORTEZOMIB [Suspect]
     Active Substance: BORTEZOMIB
     Dosage: 2 MG/M2
     Route: 058
     Dates: start: 20171107, end: 201711
  48. BORTEZOMIB [Suspect]
     Active Substance: BORTEZOMIB
     Dosage: 1.8 MG/M2, 1 CYCLE
     Route: 058
     Dates: start: 20171110, end: 20171114
  49. BORTEZOMIB [Suspect]
     Active Substance: BORTEZOMIB
     Dosage: 1.3 MG/M2, QCY
     Route: 058
     Dates: start: 20171106, end: 20171106
  50. BORTEZOMIB [Suspect]
     Active Substance: BORTEZOMIB
     Dosage: 1.3 MG/M2, QCY
     Route: 058
     Dates: start: 20171110, end: 20171110
  51. BORTEZOMIB [Suspect]
     Active Substance: BORTEZOMIB
     Dosage: 1 MG/M2
     Route: 058
     Dates: start: 20171106, end: 20171106
  52. BORTEZOMIB [Suspect]
     Active Substance: BORTEZOMIB
     Dosage: 1.8 MG/M2
     Route: 058
     Dates: start: 20171103, end: 20171103
  53. BORTEZOMIB [Suspect]
     Active Substance: BORTEZOMIB
     Dosage: 1.8 MG/M2,1 CYCLE
     Route: 058
     Dates: start: 20171107, end: 201711
  54. VELCADE [Suspect]
     Active Substance: BORTEZOMIB
     Indication: Plasma cell leukaemia
     Dosage: VMP REGIMEN, CYCLE 1, ON DAYS 1, 4, 8, 11, 22, 25, 29 AND 32, DOSAGE FORM: LYOPHILIZED POWDER
     Route: 058
  55. VELCADE [Suspect]
     Active Substance: BORTEZOMIB
     Indication: Product used for unknown indication
     Dosage: VMP REGIMEN, DAY 1 OF CYCLE 2, DOSE ALSO REPORTED AS 2 MG, COMPOUNDED WITH SODIUM CHLORIDE, DOSAGE F
     Route: 058
     Dates: start: 20171103, end: 20171103
  56. VELCADE [Suspect]
     Active Substance: BORTEZOMIB
     Dosage: VMP REGIMEN, DAY 4 OF CYCLE 2, DOSE ALSO REPORTED AS 2 MG, COMPOUNDED WITH SODIUM CHLORIDE, DOSAGE F
     Route: 058
     Dates: start: 20171106, end: 20171106
  57. VELCADE [Suspect]
     Active Substance: BORTEZOMIB
     Dosage: VMP REGIMEN, DAY 8 OF CYCLE 2, DOSE ALSO REPORTED AS 2 MG, COMPOUNDED WITH SODIUM CHLORIDE, DOSAGE F
     Route: 058
     Dates: start: 20171110, end: 20171114
  58. VELCADE [Suspect]
     Active Substance: BORTEZOMIB
     Route: 058
     Dates: start: 20171107, end: 201711
  59. VELCADE [Suspect]
     Active Substance: BORTEZOMIB
     Dosage: UNK1.8 MG/M2 Q_CYCLE / 1.3 MG/M2 DAILY / 1.8 MG/M2 UNK / DOSE TEXT: 1.3 MG/M2, 1 CYCLE / 1.8 MG/M...
     Route: 065
  60. VELCADE [Suspect]
     Active Substance: BORTEZOMIB
     Dosage: 1.3 MG/M2, 1 CYCLE
     Route: 058
  61. VELCADE [Suspect]
     Active Substance: BORTEZOMIB
     Dosage: 1.3 MILLIGRAM/SQ. METER, CYCLICAL
     Route: 058
     Dates: start: 20171103, end: 20171103
  62. FENTANYL CITRATE [Suspect]
     Active Substance: FENTANYL CITRATE
     Indication: Product used for unknown indication
     Dosage: 12 UG (12 UG/INHAL UNK;
     Route: 055
  63. SODIUM CHLORIDE [Suspect]
     Active Substance: SODIUM CHLORIDE
     Indication: Medication dilution
     Route: 065
     Dates: start: 20171103
  64. SODIUM CHLORIDE [Suspect]
     Active Substance: SODIUM CHLORIDE
     Dosage: DOSE RE-INTRODUCED
     Route: 065
  65. PREDNISOLONE [Suspect]
     Active Substance: PREDNISOLONE
     Indication: Plasma cell leukaemia
     Dosage: CYCLE 1, VMP REGIMEN
     Route: 065
  66. PREDNISOLONE [Suspect]
     Active Substance: PREDNISOLONE
     Dosage: VMP REGIMEN, DAY 1 TO 4, CYCLE 2
     Route: 065
     Dates: start: 20171103, end: 20171106
  67. BENDROFLUMETHIAZIDE [Concomitant]
     Active Substance: BENDROFLUMETHIAZIDE
     Indication: Product used for unknown indication
     Dosage: 2.5 MILLIGRAM, ONCE A DAY
     Route: 065
  68. RAMIPRIL [Concomitant]
     Active Substance: RAMIPRIL
     Indication: Product used for unknown indication
     Dosage: 10 MILLIGRAM, ONCE A DAY, DOSAGE FORM: UNSPECIFIED, EVERY MORNING
     Route: 065

REACTIONS (13)
  - Hallucination [Recovered/Resolved]
  - Paranoia [Recovered/Resolved]
  - Intentional product misuse [Unknown]
  - Drug abuse [Unknown]
  - Emotional distress [Not Recovered/Not Resolved]
  - Medication error [Unknown]
  - Disturbance in social behaviour [Recovered/Resolved]
  - Product use in unapproved indication [Unknown]
  - Confusional state [Not Recovered/Not Resolved]
  - Disorientation [Recovered/Resolved]
  - Off label use [Unknown]
  - Abnormal behaviour [Recovered/Resolved]
  - Agitation [Recovered/Resolved]

NARRATIVE: CASE EVENT DATE: 20171107
